APPROVED DRUG PRODUCT: CIMDUO
Active Ingredient: LAMIVUDINE; TENOFOVIR DISOPROXIL FUMARATE
Strength: 300MG;300MG
Dosage Form/Route: TABLET;ORAL
Application: N022141 | Product #001
Applicant: MYLAN LABORATORIES LTD
Approved: Feb 28, 2018 | RLD: Yes | RS: Yes | Type: RX